FAERS Safety Report 8434729-5 (Version None)
Quarter: 2012Q2

REPORT INFORMATION
  Report Type: 
  Country: None (occurrence: None)
  Receive Date: 20120614
  Receipt Date: 20120611
  Transmission Date: 20120825
  Serious: Yes (Death)
  Sender: FDA-Public Use
  Company Number: US-ELI_LILLY_AND_COMPANY-US201205006372

PATIENT
  Sex: Male
  Weight: 82.993 kg

DRUGS (1)
  1. GEMZAR [Suspect]
     Dosage: 1500 MG, OTHER
     Route: 042
     Dates: start: 20100728

REACTIONS (1)
  - NEOPLASM PROGRESSION [None]
